FAERS Safety Report 5761777-6 (Version None)
Quarter: 2008Q2

REPORT INFORMATION
  Report Type: 
  Country: None (occurrence: None)
  Receive Date: 20080606
  Receipt Date: 20080527
  Transmission Date: 20081010
  Serious: Yes (Other)
  Sender: FDA-Public Use
  Company Number: ES-PFIZER INC-2008044490

PATIENT
  Age: 74 Year
  Sex: Male

DRUGS (8)
  1. ATORVASTATIN CALCIUM [Suspect]
  2. NEURONTIN [Interacting]
  3. METFORMIN HCL [Interacting]
  4. ADIRO [Interacting]
  5. MEMANTINE HCL [Interacting]
     Dates: start: 20071201, end: 20080219
  6. EXELON [Interacting]
     Indication: AMNESIA
     Dosage: TEXT:2MG/ML
  7. HUMULINA [Suspect]
  8. PANTOPRAZOLE SODIUM [Suspect]

REACTIONS (6)
  - AMNESIA [None]
  - COORDINATION ABNORMAL [None]
  - DISORIENTATION [None]
  - DRUG INTERACTION [None]
  - INSOMNIA [None]
  - SYNCOPE [None]
